FAERS Safety Report 4831850-5 (Version None)
Quarter: 2005Q4

REPORT INFORMATION
  Report Type: 
  Country: None (occurrence: None)
  Receive Date: 20051118
  Receipt Date: 20051013
  Transmission Date: 20060501
  Serious: Yes (Hospitalization)
  Sender: FDA-Public Use
  Company Number: DE-SANOFI-SYNTHELABO-F04200500157

PATIENT
  Sex: Male
  Weight: 72 kg

DRUGS (8)
  1. ELOXATIN [Suspect]
     Indication: RECTAL CANCER
     Route: 041
     Dates: start: 20050616, end: 20050616
  2. CAPECITABIN [Suspect]
     Indication: RECTAL CANCER
     Dosage: 2024 MG/M2
     Route: 048
     Dates: start: 20050616, end: 20050616
  3. GLIMEPIRIDE [Concomitant]
     Indication: DIABETES MELLITUS
     Route: 048
  4. LOSARTAN [Concomitant]
     Indication: HYPERTENSION
     Dosage: 50 MG
     Route: 048
  5. HYDROCHLOROTHIAZIDE [Concomitant]
     Indication: HYPERTENSION
     Route: 048
  6. METFORMIN [Concomitant]
     Indication: DIABETES MELLITUS NON-INSULIN-DEPENDENT
     Route: 048
  7. MOXONIDIN [Concomitant]
     Indication: HYPERTENSION
     Dosage: 0.2 MG
     Route: 048
  8. GRANISETRON [Concomitant]
     Indication: PROPHYLAXIS OF NAUSEA AND VOMITING
     Route: 065
     Dates: start: 20050616, end: 20050616

REACTIONS (4)
  - BLOOD PRESSURE DECREASED [None]
  - CAROTID ARTERY STENOSIS [None]
  - HEART RATE DECREASED [None]
  - SYNCOPE [None]
